FAERS Safety Report 20091166 (Version 1)
Quarter: 2021Q4

REPORT INFORMATION
  Report Type: Spontaneous
  Country: ES (occurrence: ES)
  Receive Date: 20211119
  Receipt Date: 20211119
  Transmission Date: 20220304
  Serious: Yes (Hospitalization, Other)
  Sender: FDA-Public Use
  Company Number: ES-LUPIN PHARMACEUTICALS INC.-2021-22676

PATIENT
  Age: 69 Day
  Sex: Male

DRUGS (3)
  1. METRONIDAZOLE [Interacting]
     Active Substance: METRONIDAZOLE
     Indication: Evidence based treatment
     Dosage: 10 MILLIGRAM/KILOGRAM, TID
     Route: 042
  2. FLUCONAZOLE [Interacting]
     Active Substance: FLUCONAZOLE
     Indication: Urinary tract candidiasis
     Dosage: UNK
     Route: 042
  3. CEFTRIAXONE [Concomitant]
     Active Substance: CEFTRIAXONE
     Indication: Evidence based treatment
     Dosage: 2 GRAM, BID
     Route: 042

REACTIONS (2)
  - Cerebellar syndrome [Recovered/Resolved]
  - Drug interaction [Unknown]
